FAERS Safety Report 5430705-5 (Version None)
Quarter: 2007Q3

REPORT INFORMATION
  Report Type: 
  Country: None (occurrence: None)
  Receive Date: 20070830
  Receipt Date: 20061121
  Transmission Date: 20080115
  Serious: No
  Sender: FDA-Public Use
  Company Number: A0547135A

PATIENT
  Age: 50 Year
  Sex: Female

DRUGS (3)
  1. WELLBUTRIN XL [Suspect]
     Indication: DEPRESSION
     Dosage: 150MG PER DAY
     Route: 048
     Dates: start: 20041212, end: 20050201
  2. XANAX [Concomitant]
  3. ALPRAZOLAM [Concomitant]

REACTIONS (5)
  - ANXIETY [None]
  - DIZZINESS [None]
  - INSOMNIA [None]
  - MYOCARDIAL INFARCTION [None]
  - TINNITUS [None]
